FAERS Safety Report 5379460-8 (Version None)
Quarter: 2007Q3

REPORT INFORMATION
  Report Type: 
  Country: None (occurrence: None)
  Receive Date: 20070703
  Receipt Date: 20070626
  Transmission Date: 20080115
  Serious: Yes (Hospitalization)
  Sender: FDA-Public Use
  Company Number: 2007BI013537

PATIENT
  Age: 48 Year
  Sex: Female
  Weight: 55.3388 kg

DRUGS (11)
  1. AVONEX [Suspect]
     Indication: MULTIPLE SCLEROSIS
     Dosage: 30 UG;QW; IM
     Route: 030
     Dates: start: 19970101, end: 20030801
  2. AVONEX [Suspect]
     Indication: MULTIPLE SCLEROSIS
     Dosage: 30 UG;QW; IM
     Route: 030
     Dates: start: 20030801, end: 20030101
  3. AVONEX [Suspect]
     Indication: MULTIPLE SCLEROSIS
     Dosage: 30 UG;QW; IM
     Route: 030
     Dates: start: 20030101
  4. NEURONTIN [Concomitant]
  5. ZANAFLEX [Concomitant]
  6. CLONOPIN [Concomitant]
  7. SINGULAIR [Concomitant]
  8. OXYCODONE HCL [Concomitant]
  9. WELLBUTRIN [Concomitant]
  10. IBUPROFEN [Concomitant]
  11. MACROBID [Concomitant]

REACTIONS (11)
  - ARTHRALGIA [None]
  - BURNING SENSATION [None]
  - HYSTERECTOMY [None]
  - INFLUENZA LIKE ILLNESS [None]
  - INJECTION SITE IRRITATION [None]
  - INJECTION SITE MASS [None]
  - LOWER EXTREMITY MASS [None]
  - MASS [None]
  - UPPER EXTREMITY MASS [None]
  - URINARY TRACT INFECTION [None]
  - WEIGHT DECREASED [None]
